FAERS Safety Report 5324333-X (Version None)
Quarter: 2007Q2

REPORT INFORMATION
  Report Type: 
  Country: None (occurrence: None)
  Receive Date: 20070509
  Receipt Date: 20070424
  Transmission Date: 20071010
  Serious: Yes (Hospitalization)
  Sender: FDA-Public Use
  Company Number: 100#08#2007-01518

PATIENT
  Sex: Male

DRUGS (6)
  1. CEFUROXIME SODIUM (CEFUROXIME SODIUM) (CEFUROXIME SODIUM) [Suspect]
     Indication: DRUG EXPOSURE DURING PREGNANCY
     Dosage: 3 GM;
     Route: 064
  2. CEFUROXIME SODIUM (CEFUROXIME SODIUM) (CEFUROXIME SODIUM) [Suspect]
     Indication: PREMATURE RUPTURE OF MEMBRANES
     Dosage: 3 GM;
     Route: 064
  3. METRONIDAZOLE [Suspect]
     Indication: DRUG EXPOSURE DURING PREGNANCY
     Dosage: 1 GM
     Route: 064
  4. METRONIDAZOLE [Suspect]
     Indication: PREMATURE RUPTURE OF MEMBRANES
     Dosage: 1 GM
     Route: 064
  5. CYSTAGON [Suspect]
     Indication: CYSTINOSIS
     Dosage: 300 MG THREE TIMES A DAY; TRANSPLACENTAL
     Route: 064
  6. CYSTAGON [Suspect]
     Indication: DRUG EXPOSURE DURING PREGNANCY
     Dosage: 300 MG THREE TIMES A DAY; TRANSPLACENTAL
     Route: 064

REACTIONS (5)
  - BLOOD CREATININE INCREASED [None]
  - DRUG EXPOSURE DURING PREGNANCY [None]
  - NEONATAL DISORDER [None]
  - PREMATURE BABY [None]
  - RESPIRATORY DISORDER NEONATAL [None]
